FAERS Safety Report 7816765-2 (Version None)
Quarter: 2011Q4

REPORT INFORMATION
  Report Type: 
  Country: None (occurrence: None)
  Receive Date: 20111017
  Receipt Date: 20111003
  Transmission Date: 20120403
  Serious: Yes (Hospitalization)
  Sender: FDA-Public Use
  Company Number: US-ACTELION-A-US2011-53866

PATIENT

DRUGS (6)
  1. DIGOXIN [Concomitant]
  2. REMODULIN [Concomitant]
  3. OXYGEN [Concomitant]
  4. TRACLEER [Suspect]
     Indication: PULMONARY ARTERIAL HYPERTENSION
     Dosage: 31.2 MG BID
     Route: 048
     Dates: start: 20101119
  5. REVATIO [Concomitant]
     Dosage: 10 MG, QID
  6. LASIX [Concomitant]

REACTIONS (6)
  - PULMONARY ARTERIAL HYPERTENSION [None]
  - OXYGEN SATURATION DECREASED [None]
  - DISEASE PROGRESSION [None]
  - TERMINAL STATE [None]
  - NO THERAPEUTIC RESPONSE [None]
  - ABNORMAL BEHAVIOUR [None]
